FAERS Safety Report 13767751 (Version 1)
Quarter: 2017Q3

REPORT INFORMATION
  Report Type: Spontaneous
  Country: OM (occurrence: US)
  Receive Date: 20170719
  Receipt Date: 20170719
  Transmission Date: 20171127
  Serious: Yes (Other)
  Sender: FDA-Public Use
  Company Number: OM-STRIDES ARCOLAB LIMITED-2017SP009203

PATIENT

DRUGS (3)
  1. ADALIMUMAB [Suspect]
     Active Substance: ADALIMUMAB
     Indication: INFLAMMATORY BOWEL DISEASE
     Dosage: UNK
     Route: 065
  2. MYCOPHENOLATE MOFETIL. [Suspect]
     Active Substance: MYCOPHENOLATE MOFETIL
     Indication: IMMUNOSUPPRESSION
     Dosage: 1080 UNK
     Route: 065
  3. TACROLIMUS. [Suspect]
     Active Substance: TACROLIMUS
     Indication: IMMUNOSUPPRESSION
     Dosage: 4 UNK
     Route: 065

REACTIONS (5)
  - Pneumonia [Unknown]
  - Urinary tract infection [Unknown]
  - Lung neoplasm malignant [Unknown]
  - Epstein-Barr virus infection [Unknown]
  - BK virus infection [Unknown]
